FAERS Safety Report 8538051-8 (Version None)
Quarter: 2012Q3

REPORT INFORMATION
  Report Type: 
  Country: None (occurrence: None)
  Receive Date: 20120725
  Receipt Date: 20120704
  Transmission Date: 20120928
  Serious: Yes (Other)
  Sender: FDA-Public Use
  Company Number: BR-009507513-1207BRA001073

PATIENT

DRUGS (5)
  1. TEMODAL [Suspect]
     Dosage: UNK UNK, CYCLICAL
     Route: 048
     Dates: start: 20120401, end: 20120401
  2. TEMODAL [Suspect]
     Dosage: UNK UNK, CYCLICAL
     Route: 048
     Dates: start: 20120301, end: 20120301
  3. TEMODAL [Suspect]
     Indication: GLIOBLASTOMA
     Dosage: UNK UNK, CYCLICAL
     Route: 048
     Dates: start: 20120206, end: 20120210
  4. PHENOBARBITAL TAB [Concomitant]
     Indication: CONVULSION PROPHYLAXIS
     Dosage: 100 MG, QD
     Route: 048
     Dates: start: 20111201
  5. TEMODAL [Suspect]
     Dosage: UNK UNK, CYCLICAL
     Route: 048
     Dates: start: 20120206, end: 20120206

REACTIONS (2)
  - PRODUCT OUTER PACKAGING ISSUE [None]
  - GLIOBLASTOMA [None]
